FAERS Safety Report 23139229 (Version 1)
Quarter: 2023Q4

REPORT INFORMATION
  Report Type: Spontaneous
  Country: US (occurrence: US)
  Receive Date: 20231102
  Receipt Date: 20231102
  Transmission Date: 20240110
  Serious: No
  Sender: FDA-Public Use
  Company Number: US-KOWA PHARMACEUTICALS-2023KOW00036

PATIENT
  Sex: Female
  Weight: 84.807 kg

DRUGS (1)
  1. SEGLENTIS [Suspect]
     Active Substance: CELECOXIB\TRAMADOL HYDROCHLORIDE
     Indication: Pain
     Dosage: 2 TABLETS, 2X/DAY AS NEEDED (Q 12 H PRN)

REACTIONS (1)
  - Rash [Recovered/Resolved]
